FAERS Safety Report 4795011-0 (Version None)
Quarter: 2005Q4

REPORT INFORMATION
  Report Type: 
  Country: None (occurrence: None)
  Receive Date: 20051012
  Receipt Date: 20050920
  Transmission Date: 20060501
  Serious: Yes (Hospitalization)
  Sender: FDA-Public Use
  Company Number: PHHO2005GB15279

PATIENT
  Sex: Male

DRUGS (3)
  1. MISOPROSTOL [Suspect]
     Route: 064
  2. DINOPROSTONE [Suspect]
     Route: 064
  3. SYNTOCINON [Suspect]
     Route: 064

REACTIONS (1)
  - FOETAL HEART RATE ABNORMAL [None]
